FAERS Safety Report 6109348-6 (Version None)
Quarter: 2009Q1

REPORT INFORMATION
  Report Type: 
  Country: None (occurrence: None)
  Receive Date: 20090306
  Receipt Date: 20090306
  Transmission Date: 20090719
  Serious: Yes (Life-Threatening, Hospitalization, Disabling, Other)
  Sender: FDA-Public Use
  Company Number: None

PATIENT
  Age: 66 Year
  Sex: Female
  Weight: 58.9676 kg

DRUGS (2)
  1. KADIAN [Suspect]
     Indication: FIBROMYALGIA
     Dosage: 60 MG 2/DAY PO
     Route: 048
     Dates: start: 19910901, end: 20081002
  2. KADIAN [Suspect]
     Indication: OSTEOARTHRITIS
     Dosage: 60 MG 2/DAY PO
     Route: 048
     Dates: start: 19910901, end: 20081002

REACTIONS (11)
  - ANXIETY [None]
  - CONSTIPATION [None]
  - DEPRESSION [None]
  - DIARRHOEA [None]
  - GASTROINTESTINAL DISORDER [None]
  - HYPOPHAGIA [None]
  - INSOMNIA [None]
  - MALAISE [None]
  - NAUSEA [None]
  - PANIC ATTACK [None]
  - WEIGHT DECREASED [None]
